FAERS Safety Report 17897394 (Version 1)
Quarter: 2020Q2

REPORT INFORMATION
  Report Type: Spontaneous
  Country: US (occurrence: US)
  Receive Date: 20200616
  Receipt Date: 20200616
  Transmission Date: 20200714
  Serious: No
  Sender: FDA-Public Use
  Company Number: US-JNJFOC-20200613247

PATIENT
  Age: 24 Year
  Sex: Male

DRUGS (1)
  1. MENS ROGAINE EXTRA STRENGTH [Suspect]
     Active Substance: MINOXIDIL
     Indication: ALOPECIA
     Dosage: 1 PUMP ONCE
     Route: 061
     Dates: start: 20200605, end: 20200605

REACTIONS (3)
  - Incorrect dose administered [Unknown]
  - Application site rash [Recovered/Resolved]
  - Application site acne [Recovered/Resolved]

NARRATIVE: CASE EVENT DATE: 20200605
